FAERS Safety Report 7904396-5 (Version None)
Quarter: 2011Q4

REPORT INFORMATION
  Report Type: 
  Country: None (occurrence: None)
  Receive Date: 20111109
  Receipt Date: 20111102
  Transmission Date: 20120403
  Serious: Yes (Hospitalization, Other)
  Sender: FDA-Public Use
  Company Number: US-ABBOTT-11P-163-0871019-00

PATIENT
  Sex: Female
  Weight: 57.204 kg

DRUGS (11)
  1. HUMIRA [Suspect]
     Route: 058
  2. WELCHOL [Concomitant]
     Indication: CROHN'S DISEASE
  3. FOLIC ACID [Concomitant]
     Indication: CROHN'S DISEASE
  4. HUMIRA [Suspect]
     Route: 058
     Dates: start: 20080101
  5. PREDNISONE [Concomitant]
     Indication: CROHN'S DISEASE
  6. PROZAC [Concomitant]
     Indication: STRESS
  7. HUMIRA [Suspect]
     Indication: CROHN'S DISEASE
     Route: 058
     Dates: start: 20080101
  8. HUMIRA [Suspect]
     Route: 058
     Dates: start: 20110801
  9. VANCOMYCIN [Concomitant]
     Indication: CROHN'S DISEASE
  10. VITAMIN B-12 [Concomitant]
     Indication: CROHN'S DISEASE
  11. PROZAC [Concomitant]
     Indication: DEPRESSION

REACTIONS (12)
  - INJECTION SITE URTICARIA [None]
  - CROHN'S DISEASE [None]
  - INJECTION SITE PRURITUS [None]
  - C-REACTIVE PROTEIN ABNORMAL [None]
  - WEIGHT DECREASED [None]
  - C-REACTIVE PROTEIN INCREASED [None]
  - FATIGUE [None]
  - ABDOMINAL PAIN [None]
  - MUSCLE SPASMS [None]
  - CONDITION AGGRAVATED [None]
  - INJECTION SITE REACTION [None]
  - HEADACHE [None]
